FAERS Safety Report 8604525-4 (Version None)
Quarter: 2012Q3

REPORT INFORMATION
  Report Type: 
  Country: None (occurrence: None)
  Receive Date: 20120820
  Receipt Date: 20120809
  Transmission Date: 20120928
  Serious: Yes (Disabling)
  Sender: FDA-Public Use
  Company Number: JP-JNJFOC-20120807150

PATIENT
  Age: 33 Year
  Sex: Male

DRUGS (3)
  1. MANY OTHER UNSPECIFIED MEDICATIONS [Suspect]
     Indication: PRODUCT USED FOR UNKNOWN INDICATION
     Route: 065
  2. RISPERDAL [Suspect]
     Indication: PRODUCT USED FOR UNKNOWN INDICATION
     Route: 048
     Dates: start: 20041201, end: 20060801
  3. RISPERDAL [Suspect]
     Route: 048
     Dates: start: 20060801, end: 20061001

REACTIONS (4)
  - MASTICATION DISORDER [None]
  - DYSPHAGIA [None]
  - TARDIVE DYSKINESIA [None]
  - DYSLALIA [None]
